FAERS Safety Report 9587878 (Version 2)
Quarter: 2013Q4

REPORT INFORMATION
  Report Type: Spontaneous
  Country: US (occurrence: US)
  Receive Date: 20131003
  Receipt Date: 20131113
  Transmission Date: 20140711
  Serious: Yes (Hospitalization, Other)
  Sender: FDA-Public Use
  Company Number: US-GILEAD-2013-0084694

PATIENT
  Age: 93 Year
  Sex: Female

DRUGS (2)
  1. LETAIRIS [Suspect]
     Indication: PULMONARY HYPERTENSION
     Dates: start: 20111222
  2. SILDENAFIL [Concomitant]
     Indication: PULMONARY HYPERTENSION

REACTIONS (3)
  - Cardiac pacemaker insertion [Recovered/Resolved]
  - Biopsy [Recovered/Resolved]
  - Myositis [Unknown]
